FAERS Safety Report 9402059 (Version 1)
Quarter: 2013Q3

REPORT INFORMATION
  Report Type: Report from Study
  Country: JP (occurrence: JP)
  Receive Date: 20130716
  Receipt Date: 20130716
  Transmission Date: 20140515
  Serious: Yes (Hospitalization)
  Sender: FDA-Public Use
  Company Number: PHHY2013JP074328

PATIENT
  Age: 87 Year
  Sex: Female
  Weight: 39.1 kg

DRUGS (5)
  1. RIVASTIGMIN [Suspect]
     Indication: DEMENTIA ALZHEIMER^S TYPE
     Dosage: 4.5 MG, ONCE A DAY
     Route: 062
     Dates: start: 20121109
  2. BUFFERIN//ACETYLSALICYLIC ACID [Concomitant]
     Dosage: 81 MG, UNK
  3. AMLODIN [Concomitant]
     Dosage: UNK UKN, UNK
  4. LOPRESOR [Concomitant]
     Dosage: UNK UKN, UNK
  5. NEODOPASTON [Concomitant]
     Dosage: UNK UKN, UNK

REACTIONS (1)
  - Femoral neck fracture [Unknown]
